FAERS Safety Report 6269046-5 (Version None)
Quarter: 2009Q3

REPORT INFORMATION
  Report Type: 
  Country: None (occurrence: None)
  Receive Date: 20090715
  Receipt Date: 20090706
  Transmission Date: 20100115
  Serious: Yes (Other)
  Sender: FDA-Public Use
  Company Number: B0583229A

PATIENT
  Age: 82 Year
  Sex: Female

DRUGS (10)
  1. PAROXETINE HYDROCHLORIDE [Suspect]
     Dosage: 10MG UNKNOWN
     Route: 048
  2. LOXONIN [Suspect]
     Route: 048
  3. NSAIDS [Suspect]
  4. ARICEPT [Suspect]
     Dosage: 5MG UNKNOWN
     Route: 048
  5. CHINESE MEDICINE [Suspect]
     Dosage: 7.5G UNKNOWN
     Route: 048
  6. OSTEOPOROSIS MEDICATION [Suspect]
  7. DIOVAN [Concomitant]
     Dosage: 80MG UNKNOWN
     Route: 048
  8. MEVALOTIN [Concomitant]
     Dosage: 10MG UNKNOWN
     Route: 048
  9. FOSAMAC [Concomitant]
     Route: 048
  10. RIVOTRIL [Concomitant]
     Dosage: .5MG UNKNOWN
     Route: 048

REACTIONS (5)
  - ABDOMINAL PAIN [None]
  - ANAEMIA [None]
  - GASTROINTESTINAL HAEMORRHAGE [None]
  - HYPOCHROMIC ANAEMIA [None]
  - VOMITING [None]
